FAERS Safety Report 8098568-X (Version None)
Quarter: 2012Q1

REPORT INFORMATION
  Report Type: 
  Country: None (occurrence: None)
  Receive Date: 20120129
  Receipt Date: 20110913
  Transmission Date: 20120608
  Serious: No
  Sender: FDA-Public Use
  Company Number: US-ABBOTT-11P-163-0854877-00

PATIENT
  Age: 57 Year
  Sex: Female

DRUGS (3)
  1. ADVAIR DISKUS 100/50 [Concomitant]
     Indication: BLOOD BERYLLIUM
  2. HUMIRA [Suspect]
     Indication: CROHN'S DISEASE
     Dates: start: 20110301
  3. VICODIN [Concomitant]
     Indication: ANKLE OPERATION
     Dosage: PRN

REACTIONS (6)
  - RASH ERYTHEMATOUS [None]
  - RASH [None]
  - RASH PAPULAR [None]
  - PRURITUS [None]
  - RASH MACULAR [None]
  - EXFOLIATIVE RASH [None]
